FAERS Safety Report 17370359 (Version 2)
Quarter: 2020Q1

REPORT INFORMATION
  Report Type: Spontaneous
  Country: US (occurrence: US)
  Receive Date: 20200205
  Receipt Date: 20200212
  Transmission Date: 20200409
  Serious: Yes (Hospitalization, Other)
  Sender: FDA-Public Use
  Company Number: US-ROCHE-2543081

PATIENT
  Age: 71 Year
  Sex: Female

DRUGS (1)
  1. ESBRIET [Suspect]
     Active Substance: PIRFENIDONE
     Indication: PRODUCT USED FOR UNKNOWN INDICATION
     Dosage: 1 TABLET TID ORAL
     Route: 048
     Dates: start: 2019

REACTIONS (7)
  - Headache [Unknown]
  - Viral upper respiratory tract infection [Unknown]
  - Gastric disorder [Unknown]
  - Pneumonia [Unknown]
  - Decreased appetite [Unknown]
  - Dehydration [Unknown]
  - Loss of consciousness [Unknown]

NARRATIVE: CASE EVENT DATE: 20200203
